FAERS Safety Report 10355169 (Version 6)
Quarter: 2014Q4

REPORT INFORMATION
  Report Type: Spontaneous
  Country: DE (occurrence: DE)
  Receive Date: 20140731
  Receipt Date: 20141013
  Transmission Date: 20150528
  Serious: Yes (Hospitalization)
  Sender: FDA-Public Use
  Company Number: DE-JNJFOC-20140716568

PATIENT
  Age: 82 Year
  Sex: Male
  Weight: 76.8 kg

DRUGS (4)
  1. OLYSIO [Suspect]
     Active Substance: SIMEPREVIR
     Indication: CHRONIC HEPATITIS C
     Route: 048
     Dates: start: 201407
  2. SOVALDI [Suspect]
     Active Substance: SOFOSBUVIR
     Indication: CHRONIC HEPATITIS C
     Route: 065
     Dates: start: 201407
  3. SOVALDI [Suspect]
     Active Substance: SOFOSBUVIR
     Indication: CHRONIC HEPATITIS C
     Route: 065
     Dates: start: 201407, end: 201407
  4. OLYSIO [Suspect]
     Active Substance: SIMEPREVIR
     Indication: CHRONIC HEPATITIS C
     Route: 048
     Dates: start: 20140629, end: 201407

REACTIONS (12)
  - Hypoaesthesia [Recovering/Resolving]
  - Red blood cell count decreased [Recovered/Resolved]
  - Asthenia [Recovered/Resolved]
  - Melaena [Recovered/Resolved]
  - Leukocytosis [Unknown]
  - Gastric haemorrhage [Recovered/Resolved]
  - Anaemia [Recovered/Resolved]
  - Vision blurred [Recovering/Resolving]
  - Memory impairment [Recovering/Resolving]
  - Blood iron decreased [Recovering/Resolving]
  - Haemoglobin decreased [Recovered/Resolved]
  - Dyspnoea [Recovering/Resolving]

NARRATIVE: CASE EVENT DATE: 20140712
